FAERS Safety Report 17128963 (Version 1)
Quarter: 2019Q4

REPORT INFORMATION
  Report Type: Spontaneous
  Country: GB (occurrence: GB)
  Receive Date: 20191209
  Receipt Date: 20191209
  Transmission Date: 20200122
  Serious: Yes (Other)
  Sender: FDA-Public Use
  Company Number: GB-PFIZER INC-2019523462

PATIENT
  Age: 40 Year
  Sex: Female
  Weight: 70 kg

DRUGS (10)
  1. CYCLIZINE [Concomitant]
     Active Substance: CYCLIZINE
     Dosage: 150 MG, DAILY
     Dates: start: 20180327
  2. LANSOPRAZOLE. [Concomitant]
     Active Substance: LANSOPRAZOLE
     Dosage: 15 MG, DAILY
     Dates: start: 20180919
  3. ETORICOXIB. [Concomitant]
     Active Substance: ETORICOXIB
     Dosage: 90 MG, DAILY
     Dates: start: 20180419, end: 20191008
  4. TRAMADOL. [Concomitant]
     Active Substance: TRAMADOL
     Dosage: UNK (ONE/TWO FOUR TIMES A DAY)
     Dates: start: 20180125, end: 20191008
  5. FOLIC ACID. [Concomitant]
     Active Substance: FOLIC ACID
     Dosage: 5 MG, DAILY
     Dates: start: 20180227, end: 20190713
  6. LEFLUNOMIDE. [Concomitant]
     Active Substance: LEFLUNOMIDE
     Dosage: UNK, 1X/DAY, (1-2 TABLET)
     Dates: start: 20180201, end: 20191018
  7. METHOTREXATE SODIUM. [Suspect]
     Active Substance: METHOTREXATE SODIUM
     Dosage: 2.5 MG, UNK
  8. HYDROXYCHLOROQUINE [Concomitant]
     Active Substance: HYDROXYCHLOROQUINE
     Dosage: 400 MG, DAILY
     Dates: start: 20180716, end: 20190318
  9. AMITRIPTYLINE [Concomitant]
     Active Substance: AMITRIPTYLINE
     Dosage: UNK (1-2 AT NIGHT)
     Dates: start: 20180823
  10. VENTOLIN [Concomitant]
     Active Substance: ALBUTEROL SULFATE
     Dosage: 2 DF, UNK
     Route: 055
     Dates: start: 20180112

REACTIONS (2)
  - Oropharyngeal pain [Recovered/Resolved]
  - Dyspnoea [Unknown]

NARRATIVE: CASE EVENT DATE: 20180109
